FAERS Safety Report 4440802-9 (Version None)
Quarter: 2004Q3

REPORT INFORMATION
  Report Type: 
  Country: None (occurrence: None)
  Receive Date: 20040903
  Receipt Date: 20040615
  Transmission Date: 20050211
  Serious: Yes (Death, Hospitalization, Other)
  Sender: FDA-Public Use
  Company Number: FR-BRISTOL-MYERS SQUIBB COMPANY-12616942

PATIENT
  Age: 54 Year
  Sex: Female

DRUGS (2)
  1. TAXOL [Suspect]
     Indication: OVARIAN CANCER
     Route: 042
     Dates: start: 20020327, end: 20020501
  2. CARBOPLATIN [Suspect]
     Indication: OVARIAN CANCER
     Route: 042
     Dates: start: 20020327, end: 20020501

REACTIONS (5)
  - ANAEMIA [None]
  - CEREBROVASCULAR ACCIDENT [None]
  - DEATH [None]
  - HAEMORRHAGIC ASCITES [None]
  - ISCHAEMIC STROKE [None]
